FAERS Safety Report 24991729 (Version 1)
Quarter: 2025Q1

REPORT INFORMATION
  Report Type: Spontaneous
  Country: FR (occurrence: FR)
  Receive Date: 20250220
  Receipt Date: 20250220
  Transmission Date: 20250408
  Serious: Yes (Hospitalization, Other)
  Sender: GLAXOSMITHKLINE
  Company Number: None

PATIENT

DRUGS (2)
  1. FLUTICASONE FUROATE\VILANTEROL TRIFENATATE [Suspect]
     Active Substance: FLUTICASONE FUROATE\VILANTEROL TRIFENATATE
     Indication: Asthma
     Dosage: 1 DF, QD
     Route: 064
     Dates: end: 20230202
  2. BISOPROLOL FUMARATE [Suspect]
     Active Substance: BISOPROLOL FUMARATE
     Indication: Marfan^s syndrome
     Route: 064
     Dates: end: 20230303

REACTIONS (8)
  - Foetal growth restriction [Recovered/Resolved]
  - Foetal heart rate disorder [Recovered/Resolved]
  - Caesarean section [Recovered/Resolved]
  - Low birth weight baby [Unknown]
  - Hypoglycaemia neonatal [Recovered/Resolved]
  - Normal newborn [Recovered/Resolved]
  - Foetal exposure during pregnancy [Unknown]
  - Term birth [Unknown]

NARRATIVE: CASE EVENT DATE: 20230303
